FAERS Safety Report 5818073-8 (Version None)
Quarter: 2008Q3

REPORT INFORMATION
  Report Type: 
  Country: None (occurrence: None)
  Receive Date: 20080722
  Receipt Date: 20070828
  Transmission Date: 20090109
  Serious: No
  Sender: FDA-Public Use
  Company Number: US-BAYER-US-2007-032317

PATIENT
  Age: 26 Year
  Sex: Female
  Weight: 73 kg

DRUGS (1)
  1. MAGNEVIST [Suspect]
     Indication: NUCLEAR MAGNETIC RESONANCE IMAGING
     Dosage: UNIT DOSE: 20 ML
     Route: 042
     Dates: start: 20070823, end: 20070823

REACTIONS (7)
  - DIZZINESS [None]
  - EYE DISORDER [None]
  - LACRIMATION INCREASED [None]
  - NAUSEA [None]
  - OCULAR HYPERAEMIA [None]
  - PARAESTHESIA [None]
  - RHINORRHOEA [None]
